FAERS Safety Report 15477049 (Version 1)
Quarter: 2018Q4

REPORT INFORMATION
  Report Type: Spontaneous
  Country: US (occurrence: US)
  Receive Date: 20181002
  Receipt Date: 20181002
  Transmission Date: 20190205
  Serious: Yes (Other)
  Sender: FDA-Public Use
  Company Number: None

PATIENT
  Age: 53 Year
  Sex: Female
  Weight: 67.5 kg

DRUGS (14)
  1. SERTRALINE [Concomitant]
     Active Substance: SERTRALINE HYDROCHLORIDE
  2. VITAMIN E [Concomitant]
     Active Substance: .ALPHA.-TOCOPHEROL
  3. VITAMIN B [Concomitant]
     Active Substance: VITAMIN B
  4. GLUCOSUMINE [Concomitant]
  5. TAMOXIFEN CITRATE. [Suspect]
     Active Substance: TAMOXIFEN CITRATE
     Indication: BREAST CANCER
     Dosage: ?          QUANTITY:2 TABLET(S);?
     Route: 048
  6. TRAMADOL. [Concomitant]
     Active Substance: TRAMADOL
  7. MAPAP [Concomitant]
     Active Substance: ACETAMINOPHEN
  8. MELOXICAM. [Concomitant]
     Active Substance: MELOXICAM
  9. CALCIUM [Concomitant]
     Active Substance: CALCIUM
  10. TRAZODONE [Concomitant]
     Active Substance: TRAZODONE HYDROCHLORIDE
  11. GABAPENTIN. [Concomitant]
     Active Substance: GABAPENTIN
  12. CLARITIN ^D^ [Concomitant]
  13. FISH OIL [Concomitant]
     Active Substance: FISH OIL
  14. VITAMIN D [Concomitant]
     Active Substance: CHOLECALCIFEROL

REACTIONS (3)
  - Gingival recession [None]
  - Dry mouth [None]
  - Dental caries [None]

NARRATIVE: CASE EVENT DATE: 20171015
